FAERS Safety Report 26026068 (Version 4)
Quarter: 2025Q4

REPORT INFORMATION
  Report Type: Report from Study
  Country: US (occurrence: US)
  Receive Date: 20251111
  Receipt Date: 20251224
  Transmission Date: 20260117
  Serious: No
  Sender: PFIZER
  Company Number: US-PFIZER INC-202500170656

PATIENT
  Age: 78 Year
  Sex: Female

DRUGS (1)
  1. LEVOXYL [Suspect]
     Active Substance: LEVOTHYROXINE SODIUM
     Indication: Thyroid disorder
     Dosage: 50 UG
     Route: 048

REACTIONS (5)
  - Drug ineffective [Unknown]
  - Dyspepsia [Unknown]
  - Fatigue [Unknown]
  - Decreased appetite [Unknown]
  - Recalled product administered [Unknown]
